FAERS Safety Report 13973661 (Version 1)
Quarter: 2017Q3

REPORT INFORMATION
  Report Type: Report from Study
  Country: US (occurrence: US)
  Receive Date: 20170915
  Receipt Date: 20170915
  Transmission Date: 20171128
  Serious: Yes (Other)
  Sender: FDA-Public Use
  Company Number: US-ROCHE-1989388

PATIENT
  Sex: Female

DRUGS (1)
  1. CAPECITABINE. [Suspect]
     Active Substance: CAPECITABINE
     Indication: BREAST CANCER
     Route: 048

REACTIONS (22)
  - Nausea [Unknown]
  - Pain in extremity [Unknown]
  - Dyspnoea [Unknown]
  - Neutropenia [Unknown]
  - Leukopenia [Unknown]
  - Musculoskeletal chest pain [Unknown]
  - Abdominal pain upper [Unknown]
  - Oedema peripheral [Unknown]
  - Localised oedema [Unknown]
  - Opportunistic infection [Unknown]
  - Soft tissue disorder [Unknown]
  - Vomiting [Unknown]
  - Dehydration [Unknown]
  - Infection [Unknown]
  - Pain of skin [Unknown]
  - Bone pain [Unknown]
  - Oesophagitis [Unknown]
  - Palmar-plantar erythrodysaesthesia syndrome [Unknown]
  - Fatigue [Unknown]
  - Thrombosis [Unknown]
  - Diarrhoea [Unknown]
  - Oesophageal pain [Unknown]
